FAERS Safety Report 7470556-3 (Version None)
Quarter: 2011Q2

REPORT INFORMATION
  Report Type: 
  Country: None (occurrence: None)
  Receive Date: 20110510
  Receipt Date: 20110428
  Transmission Date: 20111010
  Serious: Yes (Hospitalization, Other)
  Sender: FDA-Public Use
  Company Number: US-ASTRAZENECA-2010SE20657

PATIENT
  Age: 940 Month
  Sex: Female
  Weight: 90.7 kg

DRUGS (14)
  1. LISINOPRIL [Concomitant]
     Route: 048
  2. ACTOS [Concomitant]
  3. FISH OIL CONCENTRATE [Concomitant]
  4. ASPIRIN [Concomitant]
     Route: 048
  5. METOPROLOL SUCCINATE [Concomitant]
     Route: 048
  6. HUMULIN R [Concomitant]
     Dosage: 70/30 (70-30 %) TWO TIMES DAILY (60 UNIT AM, 48 UNITS PM)
     Route: 058
  7. OMEPRAZOLE [Suspect]
     Route: 048
  8. METOPROLOL SUCCINATE [Concomitant]
  9. IMDUR [Concomitant]
     Route: 048
  10. DIGOXIN [Concomitant]
     Route: 048
  11. TRAZODONE HCL [Concomitant]
     Route: 048
  12. CRESTOR [Suspect]
     Route: 048
  13. SPIRONOLACTONE [Concomitant]
     Route: 048
  14. TIMOPTIC [Concomitant]
     Dosage: 0.5 ONE DROP BOTH EYES TWICE A DAY

REACTIONS (4)
  - GASTROOESOPHAGEAL REFLUX DISEASE [None]
  - COLON CANCER [None]
  - COLECTOMY [None]
  - WEIGHT DECREASED [None]
